FAERS Safety Report 18010276 (Version 2)
Quarter: 2020Q3

REPORT INFORMATION
  Report Type: Spontaneous
  Country: CN (occurrence: CN)
  Receive Date: 20200710
  Receipt Date: 20200715
  Transmission Date: 20201103
  Serious: Yes (Other)
  Sender: FDA-Public Use
  Company Number: NVSC2020CN193418

PATIENT
  Age: 64 Year
  Sex: Male

DRUGS (1)
  1. METHYLPREDNISOLONE. [Suspect]
     Active Substance: METHYLPREDNISOLONE
     Indication: COLITIS ULCERATIVE
     Dosage: FROM 14 MG/D TO 24 MG, QD
     Route: 065
     Dates: start: 201907

REACTIONS (1)
  - Kaposi^s sarcoma [Unknown]
